FAERS Safety Report 9532221 (Version 1)
Quarter: 2013Q2

REPORT INFORMATION
  Report Type: Spontaneous
  Country: US (occurrence: None)
  Receive Date: 20130503
  Receipt Date: 20130503
  Transmission Date: 20140414
  Serious: Yes (Hospitalization)
  Sender: FDA-Public Use
  Company Number: 1000042792

PATIENT
  Age: 63 Year
  Sex: Male

DRUGS (15)
  1. DALIRESP (ROFLUMILAST) (500 MICROGRAM, TABLETS) [Suspect]
     Indication: CHRONIC OBSTRUCTIVE PULMONARY DISEASE
     Dosage: 500 MCG (500 MCG, 1 IN 1 D), ORAL
     Dates: start: 201210, end: 20130118
  2. ALBUTEROL (ALBUTEROL) (ALBUTEROL) [Concomitant]
  3. FERROUS  SULFATE (FERROUS SULFATE) (FERROUS SULFATE) [Concomitant]
  4. POTASSIUM CHLORIDE (POTASSIUM CHLORIDE) (POTASSIUM CHLORIDE) [Concomitant]
  5. HYDROCHLOROTHIAZIDE (HYDROCHLOROTHIAZIDE) (HYDROCHLOROTHIAZIDE) [Concomitant]
  6. VITAMIN D3 (COLECALCIFEROL) (COLECALCIFEROL) [Concomitant]
  7. OMEPRAZOLE (OMEPRAZOLE) (OMEPRAZOLE) [Concomitant]
  8. TOPIRAMATE (TOPIRAMATE) (TOPIRAMATE) [Concomitant]
  9. TIOTROPIUM (TIOTROPIUM) (TIOTROPIUM) [Concomitant]
  10. OLANZAPINE (OLANZAPINE) (10 MILLIGRAM) (OLANZAPINE) [Concomitant]
  11. BUDESONIDE /  FURMOTEROL (BUDESONIZE, FORMOTEROL) (BUDESONIDE, FORMOTEROL) [Concomitant]
  12. CLOPIDOGREL (CLOPIDOGREL)(CLOPIDOGREL) [Concomitant]
  13. FLUOXETINE (FLUOXETINE) (FLUOXETINE) [Concomitant]
  14. VITAMIN B-12 (CYANOBALAMIN) (INJECTION) (CYANOBALAMIN) [Concomitant]
  15. MVI (VITAMINS NOS ) (VITAMINS NOS) [Concomitant]

REACTIONS (1)
  - Chronic obstructive pulmonary disease [None]
